FAERS Safety Report 6400566-6 (Version None)
Quarter: 2009Q4

REPORT INFORMATION
  Report Type: 
  Country: None (occurrence: None)
  Receive Date: 20091014
  Receipt Date: 20090930
  Transmission Date: 20100525
  Serious: Yes (Disabling)
  Sender: FDA-Public Use
  Company Number: GB-MYLANLABS-2009S1017199

PATIENT
  Age: 42 Year
  Sex: Male
  Weight: 70 kg

DRUGS (5)
  1. TERBINAFINE HCL [Suspect]
     Indication: FUNGAL SKIN INFECTION
     Route: 048
     Dates: start: 20080609, end: 20080626
  2. FLUOCINONIDE [Concomitant]
     Indication: ECZEMA
     Route: 061
     Dates: start: 20061019
  3. MOMETASONE FUROATE [Concomitant]
     Indication: ECZEMA
     Route: 061
     Dates: start: 20051109
  4. QVAR 40 [Concomitant]
     Indication: ASTHMA
     Route: 055
     Dates: start: 20021008
  5. ALBUTEROL [Concomitant]
     Indication: ASTHMA
     Route: 055
     Dates: start: 20040624

REACTIONS (5)
  - BLOOD CREATINE PHOSPHOKINASE INCREASED [None]
  - FATIGUE [None]
  - MITOCHONDRIAL MYOPATHY [None]
  - MYALGIA [None]
  - RASH [None]
